FAERS Safety Report 4548209-0 (Version None)
Quarter: 2004Q4

REPORT INFORMATION
  Report Type: 
  Country: None (occurrence: None)
  Receive Date: 20041227
  Receipt Date: 20040930
  Transmission Date: 20050328
  Serious: No
  Sender: FDA-Public Use
  Company Number: 04P-163-0275421-00

PATIENT

DRUGS (6)
  1. HUMIRA [Suspect]
     Indication: RHEUMATOID ARTHRITIS
     Dosage: 40 MG, 1 IN 2 WK, SUBCUTANEOUS
     Route: 058
     Dates: start: 20040713
  2. METHOTREXATE [Concomitant]
  3. BUCINDOLOL HYDROCHLORIDE [Concomitant]
  4. OXYCOCET [Concomitant]
  5. ZOLPIDEM TARTRATE [Concomitant]
  6. CLONAZEPAM [Concomitant]

REACTIONS (3)
  - BLISTER [None]
  - CONTUSION [None]
  - SKIN PAPILLOMA [None]
